FAERS Safety Report 24858390 (Version 2)
Quarter: 2025Q3

REPORT INFORMATION
  Report Type: Report from Study
  Country: US (occurrence: None)
  Receive Date: 20250117
  Receipt Date: 20250809
  Transmission Date: 20251021
  Serious: Yes (Other)
  Sender: ALEXION PHARMACEUTICALS
  Company Number: 202411USA026342US

PATIENT
  Sex: Female

DRUGS (1)
  1. OSIMERTINIB [Suspect]
     Active Substance: OSIMERTINIB
     Indication: Lung carcinoma cell type unspecified stage 0
     Dosage: 80 MICROGRAM, QD
     Dates: start: 202410

REACTIONS (3)
  - Thrombosis [Unknown]
  - Haemorrhage [Unknown]
  - Rash [Recovered/Resolved]
